FAERS Safety Report 9336386 (Version 2)
Quarter: 2013Q3

REPORT INFORMATION
  Report Type: Spontaneous
  Country: FR (occurrence: FR)
  Receive Date: 20130607
  Receipt Date: 20130715
  Transmission Date: 20140515
  Serious: Yes (Death, Other)
  Sender: FDA-Public Use
  Company Number: FR-JNJFOC-20130520835

PATIENT
  Age: 82 Year
  Sex: Male

DRUGS (6)
  1. ZYTIGA [Suspect]
     Indication: PROSTATE CANCER
     Dosage: 250 MG X 4 TABLETS
     Route: 048
     Dates: start: 201301
  2. COVERSYL [Concomitant]
     Indication: HYPERTENSION
     Route: 048
  3. LASILIX [Concomitant]
     Indication: HYPERTENSION
     Route: 042
  4. CORDARONE [Concomitant]
     Indication: ATRIAL FIBRILLATION
     Route: 048
  5. CORDARONE [Concomitant]
     Indication: ARRHYTHMIA
     Route: 048
  6. CORTANCYL [Concomitant]
     Indication: PROSTATE CANCER
     Route: 048

REACTIONS (5)
  - Hyponatraemia [Fatal]
  - Cardiac failure [Fatal]
  - Pleural effusion [Fatal]
  - Haemothorax [Fatal]
  - Rib fracture [Unknown]
